FAERS Safety Report 14346952 (Version 3)
Quarter: 2018Q1

REPORT INFORMATION
  Report Type: Spontaneous
  Country: US (occurrence: US)
  Receive Date: 20180103
  Receipt Date: 20180123
  Transmission Date: 20180509
  Serious: No
  Sender: FDA-Public Use
  Company Number: US-LUNDBECK-DKLU2036442

PATIENT
  Sex: Female

DRUGS (4)
  1. NORTHERA [Suspect]
     Active Substance: DROXIDOPA
     Indication: HYPOTENSION
     Dosage: SCHEDULE C AND TITRATION COMPLETE
     Route: 048
     Dates: start: 20170721
  2. SODIUM [Concomitant]
     Active Substance: SODIUM
     Indication: HYPOTENSION
     Route: 065
  3. VIT B 12 [Concomitant]
     Indication: HYPOTENSION
  4. VIT B 12 [Concomitant]
     Indication: VITAMIN SUPPLEMENTATION
     Route: 065
     Dates: start: 20170927

REACTIONS (6)
  - Vitamin B12 increased [Unknown]
  - Drug titration error [Unknown]
  - Blood pressure decreased [Recovered/Resolved]
  - Oedema [Recovered/Resolved]
  - Drug hypersensitivity [Unknown]
  - Headache [Not Recovered/Not Resolved]
